FAERS Safety Report 5244454-X (Version None)
Quarter: 2007Q1

REPORT INFORMATION
  Report Type: 
  Country: None (occurrence: None)
  Receive Date: 20070222
  Receipt Date: 20070222
  Transmission Date: 20070707
  Serious: Yes (Hospitalization)
  Sender: FDA-Public Use
  Company Number: US-GLAXOSMITHKLINE-A0640374A

PATIENT
  Age: 63 Year
  Sex: Female

DRUGS (5)
  1. COMMIT [Suspect]
     Dosage: 4MG AS DIRECTED
     Route: 002
     Dates: start: 20070107, end: 20070130
  2. SYNTHROID [Concomitant]
  3. LIPITOR [Concomitant]
  4. HYDROCHLOROTHIAZIDE [Concomitant]
  5. FEMARA [Concomitant]

REACTIONS (5)
  - APHASIA [None]
  - CEREBROVASCULAR ACCIDENT [None]
  - DYSPHAGIA [None]
  - MOVEMENT DISORDER [None]
  - SPEECH DISORDER [None]
